FAERS Safety Report 21401764 (Version 1)
Quarter: 2022Q4

REPORT INFORMATION
  Report Type: Spontaneous
  Country: US (occurrence: US)
  Receive Date: 20221003
  Receipt Date: 20221003
  Transmission Date: 20230113
  Serious: No
  Sender: FDA-Public Use
  Company Number: US-ELI_LILLY_AND_COMPANY-US202210000027

PATIENT
  Sex: Male

DRUGS (2)
  1. LYUMJEV KWIKPEN [Suspect]
     Active Substance: INSULIN LISPRO
     Indication: Product used for unknown indication
     Dosage: 14 U, UNKNOWN
     Route: 065
  2. LYUMJEV KWIKPEN [Suspect]
     Active Substance: INSULIN LISPRO
     Dosage: 14 U, UNKNOWN
     Route: 065

REACTIONS (2)
  - Accidental underdose [Unknown]
  - Product storage error [Unknown]
